FAERS Safety Report 6811976-7 (Version None)
Quarter: 2010Q3

REPORT INFORMATION
  Report Type: 
  Country: None (occurrence: None)
  Receive Date: 20100701
  Receipt Date: 20100618
  Transmission Date: 20110219
  Serious: Yes (Hospitalization)
  Sender: FDA-Public Use
  Company Number: US-ELI_LILLY_AND_COMPANY-US201004005248

PATIENT
  Sex: Female

DRUGS (1)
  1. FORTEO [Suspect]

REACTIONS (5)
  - DYSPNOEA [None]
  - NON-HODGKIN'S LYMPHOMA STAGE IV [None]
  - PAIN [None]
  - PUNCTURE SITE INFECTION [None]
  - URINARY TRACT INFECTION [None]
